FAERS Safety Report 8578649 (Version 2)
Quarter: 2012Q4

REPORT INFORMATION
  Report Type: 
  Country: AR (occurrence: AR)
  Receive Date: 20120524
  Receipt Date: 20121025
  Transmission Date: 20130627
  Serious: Yes (Hospitalization)
  Sender: FDA-Public Use
  Company Number: AR-GLAXOSMITHKLINE-A0977896A

PATIENT
  Sex: Male

DRUGS (9)
  1. VOTRIENT [Suspect]
     Indication: RENAL CANCER
     Dosage: 800MG per day
     Route: 048
     Dates: start: 201203
  2. NEBILET [Concomitant]
     Indication: HYPERTENSION
     Dosage: 2TAB per day
     Dates: end: 201205
  3. TERLOC [Concomitant]
     Indication: HYPERTENSION
     Dosage: 2TAB per day
     Route: 048
     Dates: start: 201205
  4. OMEPRAZOLE [Concomitant]
  5. ATENIX [Concomitant]
     Dosage: .5TAB per day
  6. CLOPIDOGREL [Concomitant]
  7. UNKNOWN MEDICATION [Concomitant]
     Dosage: 1TAB per day
  8. ALPLAX [Concomitant]
     Dosage: 1TAB per day
  9. MELATONIN [Concomitant]
     Indication: HYPERTENSION
     Dosage: 1TAB per day

REACTIONS (4)
  - Hypertension [Recovered/Resolved]
  - Blood sodium decreased [Recovered/Resolved]
  - Muscle spasms [Unknown]
  - Eczema [Recovering/Resolving]
